FAERS Safety Report 6876316-6 (Version None)
Quarter: 2010Q2

REPORT INFORMATION
  Report Type: 
  Country: None (occurrence: None)
  Receive Date: 20100616
  Receipt Date: 20100406
  Transmission Date: 20101027
  Serious: No
  Sender: FDA-Public Use
  Company Number: DSA_42923_2010

PATIENT
  Sex: Male

DRUGS (2)
  1. XENAZINE [Suspect]
     Indication: HUNTINGTON'S CHOREA
     Dosage: (25 MG, HALF OF A 25 MG TABLET TWICE A DAY ORAL)
     Route: 048
     Dates: start: 20091229, end: 20100301
  2. ANTIDEPRESSANTS [Concomitant]

REACTIONS (1)
  - DEPRESSION [None]
